FAERS Safety Report 9183590 (Version 2)
Quarter: 2013Q2

REPORT INFORMATION
  Report Type: Spontaneous
  Country: DE (occurrence: DE)
  Receive Date: 20130322
  Receipt Date: 20130419
  Transmission Date: 20140414
  Serious: Yes (Hospitalization)
  Sender: FDA-Public Use
  Company Number: DE-TEVA-392991GER

PATIENT
  Age: 0 Year
  Sex: Female

DRUGS (1)
  1. DIAZEPAM [Suspect]
     Route: 048

REACTIONS (7)
  - Neonatal respiratory depression [Unknown]
  - Hypotonia [Recovered/Resolved]
  - Feeding disorder neonatal [Recovered/Resolved]
  - Poor weight gain neonatal [Recovered/Resolved]
  - Fatigue [Recovered/Resolved]
  - Exposure during breast feeding [Unknown]
  - Weight decrease neonatal [Unknown]
